FAERS Safety Report 18176183 (Version 5)
Quarter: 2021Q1

REPORT INFORMATION
  Report Type: Report from Study
  Country: US (occurrence: US)
  Receive Date: 20200820
  Receipt Date: 20210111
  Transmission Date: 20210419
  Serious: Yes (Hospitalization, Disabling, Other)
  Sender: FDA-Public Use
  Company Number: US-BRISTOL-MYERS SQUIBB COMPANY-BMS-2020-066048

PATIENT
  Sex: Male
  Weight: 86.18 kg

DRUGS (3)
  1. NIVOLUMAB [Suspect]
     Active Substance: NIVOLUMAB
     Dosage: UNK, Q4WK
     Route: 042
     Dates: start: 201806
  2. NIVOLUMAB [Suspect]
     Active Substance: NIVOLUMAB
     Indication: HEAD AND NECK CANCER
     Dosage: UNK UNK, Q2WK
     Route: 042
     Dates: start: 2017
  3. OXYCODONE [Suspect]
     Active Substance: OXYCODONE
     Indication: ANDROGENS ABNORMAL
     Dosage: 10 MILLIGRAM, Q2WK
     Route: 065
     Dates: start: 201407

REACTIONS (10)
  - Myalgia [Not Recovered/Not Resolved]
  - Bowel movement irregularity [Unknown]
  - Cholelithiasis [Unknown]
  - Mydriasis [Unknown]
  - Androgens abnormal [Unknown]
  - Gait disturbance [Unknown]
  - Faeces hard [Unknown]
  - Dysuria [Not Recovered/Not Resolved]
  - Arthritis [Not Recovered/Not Resolved]
  - Muscular weakness [Not Recovered/Not Resolved]
